FAERS Safety Report 18385056 (Version 1)
Quarter: 2020Q4

REPORT INFORMATION
  Report Type: Spontaneous
  Country: KR (occurrence: KR)
  Receive Date: 20201015
  Receipt Date: 20201015
  Transmission Date: 20210114
  Serious: Yes (Hospitalization, Other)
  Sender: FDA-Public Use
  Company Number: KR-TELIGENT, INC-20201000053

PATIENT
  Age: 56 Year
  Sex: Male

DRUGS (5)
  1. CIPROFLOXACIN OPHTHALMIC SOLUTION [Suspect]
     Active Substance: CIPROFLOXACIN HYDROCHLORIDE
     Dosage: 500 MILLIGRAM, EVERY 12 HOURS
  2. SULBACTAM [Concomitant]
     Active Substance: SULBACTAM
  3. RIFAMPIN. [Concomitant]
     Active Substance: RIFAMPIN
     Dosage: 600 MILLIGRAM EVERY 24HOURS
  4. MINOCYCLINE [Concomitant]
     Active Substance: MINOCYCLINE HYDROCHLORIDE
     Dosage: 200 MG LOADING AND 100 MG EVERY 12 HOURS
  5. TRIMETHOPRIM SULFAMETHOXAZOLE [Concomitant]
     Active Substance: SULFAMETHOXAZOLE\TRIMETHOPRIM
     Dosage: 5 MG/KG EVERY 12 HOURS

REACTIONS (1)
  - Seizure [Recovered/Resolved]
